FAERS Safety Report 5078284-9 (Version None)
Quarter: 2006Q3

REPORT INFORMATION
  Report Type: 
  Country: None (occurrence: None)
  Receive Date: 20060720
  Receipt Date: 20060516
  Transmission Date: 20061208
  Serious: Yes (Other)
  Sender: FDA-Public Use
  Company Number: 2005135460

PATIENT
  Age: 57 Year
  Sex: Male
  Weight: 90.7194 kg

DRUGS (2)
  1. CELEBREX [Suspect]
     Indication: OSTEOARTHRITIS
     Dosage: 400 MG(200 MG, 2 IN 1 D), ORAL
     Route: 048
     Dates: start: 20030401
  2. CELEBREX [Suspect]
     Indication: PAIN
     Dosage: 400 MG(200 MG, 2 IN 1 D), ORAL
     Route: 048
     Dates: start: 20030401

REACTIONS (2)
  - CEREBROVASCULAR ACCIDENT [None]
  - TRANSIENT ISCHAEMIC ATTACK [None]
